FAERS Safety Report 8526048-3 (Version None)
Quarter: 2012Q3

REPORT INFORMATION
  Report Type: 
  Country: None (occurrence: None)
  Receive Date: 20120720
  Receipt Date: 20120711
  Transmission Date: 20120928
  Serious: Yes (Hospitalization)
  Sender: FDA-Public Use
  Company Number: CZ-UCBSA-057735

PATIENT
  Age: 66 Year
  Sex: Female
  Weight: 83 kg

DRUGS (5)
  1. LEVOTHYROXINE SODIUM [Concomitant]
     Indication: HYPOTHYROIDISM
     Route: 048
     Dates: start: 20080901
  2. METOPROLOL SUCCINATE [Concomitant]
     Indication: HYPERTENSION
     Route: 048
     Dates: start: 20020101
  3. CIMZIA [Suspect]
     Indication: PSORIATIC ARTHROPATHY
     Dosage: NO. OF DOSES RECEIVED : 16
     Route: 058
     Dates: start: 20110908, end: 20120510
  4. NIMESULID [Concomitant]
     Indication: PSORIATIC ARTHROPATHY
     Route: 048
     Dates: start: 20091111
  5. CIMZIA [Suspect]
     Dosage: NO. OF DOSES 20
     Route: 058
     Dates: start: 20101007, end: 20110908

REACTIONS (1)
  - BREAST CANCER [None]
